FAERS Safety Report 9181018 (Version 2)
Quarter: 2013Q2

REPORT INFORMATION
  Report Type: Report from Study
  Country: AU (occurrence: AU)
  Receive Date: 20130322
  Receipt Date: 20130513
  Transmission Date: 20140414
  Serious: Yes (Hospitalization, Other)
  Sender: FDA-Public Use
  Company Number: PHHY2013AU027441

PATIENT
  Age: 52 Year
  Sex: Female

DRUGS (5)
  1. CLOZARIL [Suspect]
     Dosage: 300 MG, UNK
     Route: 048
     Dates: start: 19990812
  2. CLOZARIL [Suspect]
     Dosage: VARIABLE TITRATING DOSES
     Route: 048
  3. CLOZARIL [Suspect]
     Dosage: RETITRATION DOSES
  4. LITHIUM [Concomitant]
     Dosage: 450 MG DAILY
     Route: 048
  5. AMISULPRIDE [Concomitant]
     Dosage: 50 MG, BID
     Route: 048

REACTIONS (6)
  - Loss of consciousness [Recovered/Resolved]
  - Circulatory collapse [Recovered/Resolved]
  - Delusion [Recovered/Resolved]
  - Hallucination, auditory [Unknown]
  - Irritability [Unknown]
  - Aggression [Unknown]
